FAERS Safety Report 7963122-4 (Version None)
Quarter: 2011Q4

REPORT INFORMATION
  Report Type: 
  Country: None (occurrence: None)
  Receive Date: 20111207
  Receipt Date: 20111205
  Transmission Date: 20120403
  Serious: Yes (Death)
  Sender: FDA-Public Use
  Company Number: GB-ROCHE-GNE321974

PATIENT
  Sex: Female

DRUGS (1)
  1. LUCENTIS [Suspect]
     Indication: PRODUCT USED FOR UNKNOWN INDICATION
     Route: 050
     Dates: start: 20091028, end: 20100101

REACTIONS (4)
  - HYPERTENSION [None]
  - ATRIAL FIBRILLATION [None]
  - DEATH [None]
  - CEREBROVASCULAR ACCIDENT [None]
